FAERS Safety Report 8221303-9 (Version None)
Quarter: 2012Q1

REPORT INFORMATION
  Report Type: 
  Country: None (occurrence: None)
  Receive Date: 20120320
  Receipt Date: 20120314
  Transmission Date: 20120608
  Serious: Yes (Other)
  Sender: FDA-Public Use
  Company Number: PHHY2010AR30447

PATIENT
  Sex: Male

DRUGS (1)
  1. STALEVO 100 [Suspect]
     Indication: PARKINSON'S DISEASE
     Dosage: 100 MG
     Dates: start: 20090408, end: 20100401

REACTIONS (7)
  - FATIGUE [None]
  - ASTHENIA [None]
  - DISEASE PROGRESSION [None]
  - COGNITIVE DISORDER [None]
  - CONFUSIONAL STATE [None]
  - HALLUCINATION [None]
  - DYSKINESIA [None]
